FAERS Safety Report 21377228 (Version 1)
Quarter: 2022Q3

REPORT INFORMATION
  Report Type: Spontaneous
  Country: US (occurrence: None)
  Receive Date: 20220925
  Receipt Date: 20220925
  Transmission Date: 20221027
  Serious: Yes (Disabling)
  Sender: FDA-Public Use
  Company Number: None

PATIENT
  Age: 76 Year
  Sex: Female
  Weight: 72 kg

DRUGS (8)
  1. METHOTREXATE (METHOTREXATE SODIUM) [Suspect]
     Active Substance: METHOTREXATE SODIUM
     Indication: Rheumatoid arthritis
     Dosage: OTHER QUANTITY : 8 TABLET(S);?OTHER FREQUENCY : 4TAB AM  4TABPM;?
     Route: 048
     Dates: start: 20210630, end: 20220531
  2. HYDROXYCHLOROQUINE [Concomitant]
     Active Substance: HYDROXYCHLOROQUINE
  3. VITAMINS [Concomitant]
     Active Substance: VITAMINS
  4. B-12 [Concomitant]
  5. CALCIUM [Concomitant]
     Active Substance: CALCIUM
  6. Tebs{eye} [Concomitant]
  7. dD3 [Concomitant]
  8. phytoflavoneDHT [Concomitant]

REACTIONS (1)
  - Back pain [None]

NARRATIVE: CASE EVENT DATE: 20220612
